FAERS Safety Report 13903504 (Version 10)
Quarter: 2018Q2

REPORT INFORMATION
  Report Type: Spontaneous
  Country: US (occurrence: US)
  Receive Date: 20170824
  Receipt Date: 20180411
  Transmission Date: 20180711
  Serious: No
  Sender: FDA-Public Use
  Company Number: US-PFIZER INC-2017363655

PATIENT
  Age: 85 Year
  Sex: Female
  Weight: 70.29 kg

DRUGS (10)
  1. VFEND [Suspect]
     Active Substance: VORICONAZOLE
     Indication: BRONCHOPULMONARY ASPERGILLOSIS
     Dosage: 200 MG, 2X/DAY
     Dates: start: 20170806
  2. VFEND [Suspect]
     Active Substance: VORICONAZOLE
     Dosage: UNK
     Dates: start: 2017, end: 20171009
  3. PREDNISONE. [Concomitant]
     Active Substance: PREDNISONE
     Indication: LUNG DISORDER
     Dosage: 20 MG, ALTERNATE DAY(TAPER DOSE)
     Route: 048
     Dates: start: 201704
  4. ALBUTEROL. [Concomitant]
     Active Substance: ALBUTEROL
     Indication: ASTHMA
     Dosage: UNK, 2X/DAY (2.5)
     Route: 055
  5. ALBUTEROL. [Concomitant]
     Active Substance: ALBUTEROL
     Indication: BRONCHIECTASIS
  6. BUDESONIDE. [Concomitant]
     Active Substance: BUDESONIDE
     Indication: BRONCHIECTASIS
  7. NUCALA [Concomitant]
     Active Substance: MEPOLIZUMAB
     Indication: LUNG DISORDER
     Dosage: UNK, MONTHLY
     Dates: start: 201709
  8. ALBUTEROL. [Concomitant]
     Active Substance: ALBUTEROL
     Indication: LUNG INFECTION
  9. BUDESONIDE. [Concomitant]
     Active Substance: BUDESONIDE
     Indication: ASTHMA
     Dosage: 0.5 MG, 2X/DAY
     Route: 055
     Dates: start: 201704
  10. BUDESONIDE. [Concomitant]
     Active Substance: BUDESONIDE
     Indication: LUNG INFECTION

REACTIONS (19)
  - Night sweats [Unknown]
  - Pruritus generalised [Recovered/Resolved]
  - Dizziness [Unknown]
  - Urine output decreased [Unknown]
  - Fatigue [Unknown]
  - Abdominal discomfort [Unknown]
  - Malaise [Recovered/Resolved]
  - Heart rate increased [Unknown]
  - Blood glucose decreased [Unknown]
  - Nausea [Unknown]
  - Vision blurred [Unknown]
  - Hypersensitivity [Unknown]
  - Dyspnoea [Unknown]
  - Body temperature increased [Unknown]
  - Condition aggravated [Unknown]
  - Diarrhoea [Not Recovered/Not Resolved]
  - Gastrooesophageal reflux disease [Unknown]
  - Insomnia [Unknown]
  - Visual impairment [Unknown]

NARRATIVE: CASE EVENT DATE: 20171009
